FAERS Safety Report 9799394 (Version 2)
Quarter: 2014Q1

REPORT INFORMATION
  Report Type: Spontaneous
  Country: BR (occurrence: BR)
  Receive Date: 20140106
  Receipt Date: 20140311
  Transmission Date: 20141002
  Serious: No
  Sender: FDA-Public Use
  Company Number: BR-009507513-1401BRA000529

PATIENT
  Age: 28 Year
  Sex: Female
  Weight: 63 kg

DRUGS (1)
  1. NUVARING [Suspect]
     Indication: CONTRACEPTION
     Dosage: UNK, CYCLICAL
     Route: 067
     Dates: start: 2010

REACTIONS (7)
  - Nasal obstruction [Recovered/Resolved]
  - Nasal operation [Recovered/Resolved]
  - Sinusitis [Not Recovered/Not Resolved]
  - Dyspnoea [Recovered/Resolved]
  - Chest pain [Recovered/Resolved]
  - Chest pain [Recovered/Resolved]
  - Inappropriate schedule of drug administration [Unknown]
